FAERS Safety Report 17772658 (Version 1)
Quarter: 2020Q2

REPORT INFORMATION
  Report Type: Spontaneous
  Country: US (occurrence: US)
  Receive Date: 20200512
  Receipt Date: 20200512
  Transmission Date: 20200714
  Serious: No
  Sender: FDA-Public Use
  Company Number: US-BIODELIVERY SCIENCES INTERNATIONAL-2020BDSI0264

PATIENT
  Age: 70 Year
  Sex: Female
  Weight: 65.83 kg

DRUGS (11)
  1. VITAMINS NOS [Concomitant]
     Active Substance: VITAMINS
     Indication: VITAMIN SUPPLEMENTATION
     Dosage: UNKNOWN; UNKNOWN
     Route: 065
  2. CAMPHOR/GLYCOL SALICYLATE/MENTHOL/BENZYL NICOTINATE/METHYL SALICYLATE [Concomitant]
     Indication: PRODUCT USED FOR UNKNOWN INDICATION
     Dosage: UNKNOWN; UNKNOWN
     Route: 061
  3. ZOLPIDEM TARTRATE. [Concomitant]
     Active Substance: ZOLPIDEM TARTRATE
     Indication: SLEEP DISORDER
     Dosage: ONCE AT NIGHT
     Route: 048
  4. METOPROLOL SUCCINATE. [Concomitant]
     Active Substance: METOPROLOL SUCCINATE
     Indication: HYPERTENSION
     Route: 048
  5. METHOCARBAMOL. [Concomitant]
     Active Substance: METHOCARBAMOL
     Indication: MUSCLE RELAXANT THERAPY
     Dosage: UNKNOWN
     Route: 048
  6. LIDOCAINE. [Concomitant]
     Active Substance: LIDOCAINE
     Indication: PRODUCT USED FOR UNKNOWN INDICATION
     Dosage: UNKNOWN; UNKNOWN
     Route: 062
  7. PEPSIN [Concomitant]
     Active Substance: PEPSIN
     Indication: SUPPLEMENTATION THERAPY
     Dosage: UNKNOWN; UNKNOWN
     Route: 065
  8. BUPRENORPHINE. [Suspect]
     Active Substance: BUPRENORPHINE
     Indication: PAIN
     Route: 002
     Dates: start: 202003, end: 202003
  9. BUPRENORPHINE. [Suspect]
     Active Substance: BUPRENORPHINE
     Route: 002
     Dates: start: 202003
  10. TILACTASE [Concomitant]
     Indication: LACTOSE INTOLERANCE
     Dosage: UNKNOWN; UNKNOWN
     Route: 048
  11. DICLOFENAC [Concomitant]
     Active Substance: DICLOFENAC
     Indication: PRODUCT USED FOR UNKNOWN INDICATION
     Dosage: UNKNOWN; UNKNOWN
     Route: 061

REACTIONS (5)
  - Drug ineffective [Unknown]
  - Product administration error [Recovered/Resolved]
  - Oral administration complication [Unknown]
  - Wrong technique in product usage process [Recovered/Resolved]
  - Decreased appetite [Not Recovered/Not Resolved]

NARRATIVE: CASE EVENT DATE: 202003
